FAERS Safety Report 4874839-2 (Version None)
Quarter: 2006Q1

REPORT INFORMATION
  Report Type: 
  Country: None (occurrence: None)
  Receive Date: 20060104
  Receipt Date: 20051220
  Transmission Date: 20060701
  Serious: Yes (Hospitalization)
  Sender: FDA-Public Use
  Company Number: 2004197513FR

PATIENT
  Age: 51 Year
  Sex: Male

DRUGS (10)
  1. DOXORUBICIN HCL [Suspect]
     Indication: ILL-DEFINED DISORDER
     Dosage: 50 MG (CYCLIC), INTRAVENOUS
     Route: 042
     Dates: start: 20031202, end: 20031202
  2. VINCRISTINE [Suspect]
     Indication: ILL-DEFINED DISORDER
     Dosage: 1.5 MG (CYCLIC), INTRAVENOUS
     Route: 042
     Dates: start: 20031202, end: 20031202
  3. HALDOL (HALIPERIDOL) [Concomitant]
  4. TRANXENE [Concomitant]
  5. PARKINANE (TRIHEXYPHENIDYL HYDROCHLORIDE) [Concomitant]
  6. OMEPRAZOLE [Concomitant]
  7. SOLUPRED (PREDNISOLONE SODIUM SULFOBENZOATE) [Concomitant]
  8. TRAMADOL HCL [Concomitant]
  9. SPASFON (PHLOROGLUCINOL, TRIMETHYLPHLOROGLUCINOL) [Concomitant]
  10. CYCLOPHOSPHAMIDE [Suspect]
     Indication: ILL-DEFINED DISORDER
     Dosage: 1000 MG (CYCLIC), INTRAVENOUS
     Route: 042
     Dates: start: 20031202, end: 20031202

REACTIONS (5)
  - FEBRILE BONE MARROW APLASIA [None]
  - LEUKOPENIA [None]
  - LUNG DISORDER [None]
  - NEUTROPENIA [None]
  - THROMBOCYTOPENIA [None]
